FAERS Safety Report 5170210-7 (Version None)
Quarter: 2006Q4

REPORT INFORMATION
  Report Type: 
  Country: None (occurrence: None)
  Receive Date: 20061212
  Receipt Date: 20060904
  Transmission Date: 20070319
  Serious: Yes (Hospitalization)
  Sender: FDA-Public Use
  Company Number: FR-ELI_LILLY_AND_COMPANY-FR200609000528

PATIENT
  Age: 31 Year
  Sex: Male

DRUGS (2)
  1. LEXOMIL [Concomitant]
     Dosage: 6 MG, 3/D
     Route: 048
     Dates: start: 19950101
  2. PROZAC [Suspect]
     Indication: BORDERLINE PERSONALITY DISORDER
     Dosage: 40 MG, DAILY (1/D)
     Route: 048
     Dates: start: 19950101

REACTIONS (2)
  - PELVIC FRACTURE [None]
  - SUICIDE ATTEMPT [None]
